FAERS Safety Report 9168518 (Version 1)
Quarter: 2013Q1

REPORT INFORMATION
  Report Type: Spontaneous
  Country: US (occurrence: None)
  Receive Date: 20130314
  Receipt Date: 20130314
  Transmission Date: 20140127
  Serious: Yes (Hospitalization)
  Sender: FDA-Public Use
  Company Number: None

PATIENT
  Age: 75 Year
  Sex: Female

DRUGS (1)
  1. EXJADE [Suspect]
     Indication: MYELODYSPLASTIC SYNDROME
     Route: 048
     Dates: start: 20120608, end: 20130305

REACTIONS (5)
  - Asthenia [None]
  - Face oedema [None]
  - Blood pressure increased [None]
  - Dizziness [None]
  - Rash [None]
